FAERS Safety Report 9161096 (Version 1)
Quarter: 2013Q1

REPORT INFORMATION
  Report Type: Report from Study
  Country: CA (occurrence: CA)
  Receive Date: 20130313
  Receipt Date: 20130313
  Transmission Date: 20140127
  Serious: Yes (Hospitalization)
  Sender: FDA-Public Use
  Company Number: CA-UCBSA-069616

PATIENT
  Age: 53 Year
  Sex: Male

DRUGS (5)
  1. CIMZIA [Suspect]
     Indication: RHEUMATOID ARTHRITIS
     Route: 058
     Dates: start: 201210
  2. ANAKINRA [Suspect]
     Indication: RHEUMATOID ARTHRITIS
     Route: 058
     Dates: start: 2011, end: 20121020
  3. MTX [Concomitant]
     Indication: RHEUMATOID ARTHRITIS
     Dosage: 20-25 MG WEEKLY, ROUTE: SC/PO
     Dates: start: 200402
  4. RAMIPRIL [Concomitant]
     Dosage: UNKNOWN
  5. METOPROLOL [Concomitant]
     Dosage: UNKNOWN

REACTIONS (4)
  - Pyrexia [Recovered/Resolved]
  - Vomiting [Recovered/Resolved]
  - Headache [Recovered/Resolved]
  - Arthralgia [Recovered/Resolved]
